FAERS Safety Report 5122359-2 (Version None)
Quarter: 2006Q4

REPORT INFORMATION
  Report Type: 
  Country: None (occurrence: None)
  Receive Date: 20061004
  Receipt Date: 20060925
  Transmission Date: 20070319
  Serious: Yes (Death, Hospitalization)
  Sender: FDA-Public Use
  Company Number: 2006BH013603

PATIENT
  Age: 60 Year
  Sex: Female

DRUGS (1)
  1. DIANEAL [Suspect]
     Indication: CARDIAC FAILURE CONGESTIVE
     Dosage: 12 L; EVERY DAY; IP
     Route: 033
     Dates: end: 20060916

REACTIONS (4)
  - CARDIAC FAILURE [None]
  - FAILURE TO THRIVE [None]
  - HYPOTENSION [None]
  - MENTAL STATUS CHANGES [None]
